FAERS Safety Report 22323369 (Version 1)
Quarter: 2023Q2

REPORT INFORMATION
  Report Type: Spontaneous
  Country: US (occurrence: US)
  Receive Date: 20230516
  Receipt Date: 20230516
  Transmission Date: 20230722
  Serious: Yes (Hospitalization, Other)
  Sender: FDA-Public Use
  Company Number: US-GLAXOSMITHKLINE-US2023AMR067838

PATIENT

DRUGS (1)
  1. ZEJULA [Suspect]
     Active Substance: NIRAPARIB
     Indication: Product used for unknown indication
     Dosage: 2 DF, QD
     Dates: start: 20230330

REACTIONS (8)
  - Hallucination [Unknown]
  - Headache [Unknown]
  - Visual impairment [Unknown]
  - Speech disorder [Unknown]
  - Personality change [Unknown]
  - Confusional state [Unknown]
  - Nystagmus [Unknown]
  - Malaise [Unknown]

NARRATIVE: CASE EVENT DATE: 20230405
